FAERS Safety Report 6573439-6 (Version None)
Quarter: 2010Q1

REPORT INFORMATION
  Report Type: 
  Country: None (occurrence: None)
  Receive Date: 20100204
  Receipt Date: 20100204
  Transmission Date: 20100710
  Serious: Yes (Death)
  Sender: FDA-Public Use
  Company Number: None

PATIENT
  Age: 83 Year
  Sex: Female
  Weight: 69 kg

DRUGS (1)
  1. TYLENOL [Suspect]
     Dosage: TAKE TWO EVERY 8 HOURS PO
     Route: 048

REACTIONS (2)
  - GASTRIC PERFORATION [None]
  - PRODUCT QUALITY ISSUE [None]
